FAERS Safety Report 7983578-0 (Version None)
Quarter: 2011Q4

REPORT INFORMATION
  Report Type: 
  Country: None (occurrence: None)
  Receive Date: 20111215
  Receipt Date: 20111206
  Transmission Date: 20120403
  Serious: Yes (Hospitalization, Other)
  Sender: FDA-Public Use
  Company Number: PHEH2011US009218

PATIENT
  Sex: Female

DRUGS (18)
  1. ZOLPIDEM [Concomitant]
     Dosage: UNK
  2. MAGNESIUM OXIDE [Concomitant]
     Dosage: UNK
  3. MYCOPHENOLIC ACID [Concomitant]
     Dosage: UNK
  4. TACROLIMUS [Concomitant]
  5. ATENOLOL [Concomitant]
     Dosage: UNK
  6. KLOR-CON [Concomitant]
  7. ACETYLSALICYLIC ACID SRT [Concomitant]
     Dosage: UNK
  8. LOVASTATIN [Concomitant]
     Dosage: UNK
  9. AMLODIPINE [Concomitant]
     Dosage: UNK
  10. TEKTURNA [Suspect]
     Indication: BLOOD PRESSURE
     Dosage: 300 MG, DAILY
  11. CALCIUM CARBONATE [Concomitant]
     Dosage: UNK
  12. DDS [Concomitant]
     Dosage: UNK
  13. LANTUS [Concomitant]
     Indication: DIABETES MELLITUS
     Dosage: 1 DF, DAILY
  14. NOVOLIN 70/30 [Concomitant]
     Indication: DIABETES MELLITUS
     Dosage: UNK DF,(70/30)
  15. LEVOTHYROXINE SODIUM [Concomitant]
     Dosage: UNK
  16. MAGNESIUM SULFATE [Concomitant]
  17. PANTOPRAZOLE [Concomitant]
     Dosage: UNK
  18. XANAX [Concomitant]
     Dosage: UNK

REACTIONS (3)
  - NASOPHARYNGITIS [None]
  - DIABETES MELLITUS [None]
  - IMMUNE SYSTEM DISORDER [None]
